FAERS Safety Report 6181143-1 (Version None)
Quarter: 2009Q2

REPORT INFORMATION
  Report Type: 
  Country: None (occurrence: None)
  Receive Date: 20090506
  Receipt Date: 20090427
  Transmission Date: 20091009
  Serious: Yes (Other)
  Sender: FDA-Public Use
  Company Number: PHHY2009GB16537

PATIENT
  Sex: Female

DRUGS (2)
  1. DIOVAN [Suspect]
     Indication: HYPERTENSION
  2. OLMETEC [Suspect]

REACTIONS (3)
  - COLORECTAL CANCER [None]
  - POLYP COLORECTAL [None]
  - SURGERY [None]
